FAERS Safety Report 21369292 (Version 1)
Quarter: 2022Q3

REPORT INFORMATION
  Report Type: Spontaneous
  Country: US (occurrence: None)
  Receive Date: 20220922
  Receipt Date: 20220922
  Transmission Date: 20221026
  Serious: Yes (Other)
  Sender: FDA-Public Use
  Company Number: None

PATIENT
  Age: 72 Year
  Sex: Female
  Weight: 93.6 kg

DRUGS (1)
  1. EVUSHELD [Suspect]
     Active Substance: CILGAVIMAB\TIXAGEVIMAB
     Indication: Immune system disorder
     Dosage: OTHER FREQUENCY : EVERY 6 MONTHS;?
     Route: 030
     Dates: start: 20220916, end: 20220916

REACTIONS (3)
  - Abdominal pain [None]
  - Vomiting [None]
  - Asthenia [None]

NARRATIVE: CASE EVENT DATE: 20220916
